FAERS Safety Report 8312702 (Version 6)
Quarter: 2014Q3

REPORT INFORMATION
  Report Type: Report from Study
  Country: ES (occurrence: ES)
  Receive Date: 20111227
  Receipt Date: 20140915
  Transmission Date: 20150326
  Serious: Yes (Death, Hospitalization, Other)
  Sender: FDA-Public Use
  Company Number: ES-ACTELION-A-CH2011-57647

PATIENT
  Age: 7 Year
  Sex: Male
  Weight: 14 kg

DRUGS (2)
  1. PHENOBARBITAL. [Concomitant]
     Active Substance: PHENOBARBITAL
     Dosage: UNK
     Dates: start: 201101
  2. ZAVESCA [Suspect]
     Active Substance: MIGLUSTAT
     Indication: NIEMANN-PICK DISEASE
     Dosage: 100 MG, BID
     Route: 048
     Dates: start: 20090119, end: 20131112

REACTIONS (10)
  - Disease progression [Fatal]
  - Hypophagia [Unknown]
  - Niemann-Pick disease [Fatal]
  - Constipation [Recovered/Resolved]
  - Growth retardation [Unknown]
  - Concomitant disease aggravated [Not Recovered/Not Resolved]
  - Transaminases increased [Unknown]
  - Convulsion [Unknown]
  - Fluid intake reduced [Recovered/Resolved]
  - Weight decreased [Unknown]

NARRATIVE: CASE EVENT DATE: 201001
